FAERS Safety Report 21505554 (Version 2)
Quarter: 2022Q4

REPORT INFORMATION
  Report Type: Spontaneous
  Country: US (occurrence: US)
  Receive Date: 20221026
  Receipt Date: 20221102
  Transmission Date: 20230113
  Serious: Yes (Other)
  Sender: FDA-Public Use
  Company Number: US-009507513-2210USA008268

PATIENT
  Sex: Female
  Weight: 85 kg

DRUGS (11)
  1. KEYTRUDA [Interacting]
     Active Substance: PEMBROLIZUMAB
     Indication: Cervix cancer metastatic
     Dosage: 200 MG EVERY 3 WEEKS
     Route: 042
     Dates: start: 20220311, end: 20221021
  2. BACTRIM [Interacting]
     Active Substance: SULFAMETHOXAZOLE\TRIMETHOPRIM
     Indication: Urinary tract infection
  3. AMOXICILLIN [Suspect]
     Active Substance: AMOXICILLIN
  4. PACLITAXEL [Suspect]
     Active Substance: PACLITAXEL
     Dosage: INFUSION
  5. CARBOPLATIN [Suspect]
     Active Substance: CARBOPLATIN
     Dosage: INFUSION
  6. TYLENOL [Concomitant]
     Active Substance: ACETAMINOPHEN
  7. ECHINACEA+ [Concomitant]
  8. ZOFRAN [Concomitant]
     Active Substance: ONDANSETRON HYDROCHLORIDE
  9. MIRALAX [Concomitant]
     Active Substance: POLYETHYLENE GLYCOL 3350
  10. SENNA+ [Concomitant]
  11. VITAMIN B [Concomitant]
     Active Substance: VITAMIN B

REACTIONS (10)
  - Neuropathy peripheral [Recovering/Resolving]
  - Drug interaction [Unknown]
  - Urticaria [Unknown]
  - Pruritus [Unknown]
  - Dyspnoea [Unknown]
  - Drug hypersensitivity [Unknown]
  - Urinary tract infection [Unknown]
  - Peripheral swelling [Recovering/Resolving]
  - Hand-foot-and-mouth disease [Recovering/Resolving]
  - Manufacturing materials issue [Unknown]

NARRATIVE: CASE EVENT DATE: 20220101
